FAERS Safety Report 5195894-9 (Version None)
Quarter: 2007Q1

REPORT INFORMATION
  Report Type: 
  Country: None (occurrence: None)
  Receive Date: 20070102
  Receipt Date: 20061222
  Transmission Date: 20070707
  Serious: Yes (Death)
  Sender: FDA-Public Use
  Company Number: VN-GLAXOSMITHKLINE-B0452122A

PATIENT
  Age: 55 Year
  Sex: Male

DRUGS (3)
  1. ZANTAC [Suspect]
     Dosage: 50MG UNKNOWN
     Route: 042
     Dates: start: 20061211, end: 20061211
  2. BLOOD TRANSFUSION [Concomitant]
  3. LACTATE RINGER [Concomitant]

REACTIONS (3)
  - CARDIAC ARREST [None]
  - CONVULSION [None]
  - RESPIRATORY ARREST [None]
